FAERS Safety Report 8245116-7 (Version None)
Quarter: 2012Q1

REPORT INFORMATION
  Report Type: 
  Country: None (occurrence: None)
  Receive Date: 20120329
  Receipt Date: 20120322
  Transmission Date: 20120608
  Serious: Yes (Other)
  Sender: FDA-Public Use
  Company Number: GR-GLAXOSMITHKLINE-B0791149A

PATIENT
  Age: 78 Year
  Sex: Female

DRUGS (2)
  1. ARIXTRA [Suspect]
     Indication: PRODUCT USED FOR UNKNOWN INDICATION
     Route: 065
  2. ANAESTHETIC [Concomitant]

REACTIONS (2)
  - MONOPARESIS [None]
  - SUBDURAL HAEMATOMA [None]
